FAERS Safety Report 4467244-4 (Version None)
Quarter: 2004Q4

REPORT INFORMATION
  Report Type: 
  Country: None (occurrence: None)
  Receive Date: 20041006
  Receipt Date: 20041001
  Transmission Date: 20050328
  Serious: Yes (Hospitalization)
  Sender: FDA-Public Use
  Company Number: US-MERCK-0410USA00309

PATIENT
  Age: 52 Year
  Sex: Female

DRUGS (8)
  1. CELEXA [Concomitant]
     Route: 065
  2. CLONAZEPAM [Concomitant]
     Route: 065
  3. ESTRADIOL [Concomitant]
     Route: 065
  4. SYNTEST DS [Concomitant]
     Route: 065
  5. ADVAIR DISKUS 100/50 [Concomitant]
     Route: 065
  6. SINGULAIR [Concomitant]
     Route: 065
  7. ACTONEL [Concomitant]
     Route: 065
  8. VIOXX [Suspect]
     Indication: PAIN
     Route: 048
     Dates: start: 20030101, end: 20041001

REACTIONS (1)
  - ANGINA PECTORIS [None]
